FAERS Safety Report 15887956 (Version 1)
Quarter: 2019Q1

REPORT INFORMATION
  Report Type: Spontaneous
  Country: US (occurrence: US)
  Receive Date: 20190130
  Receipt Date: 20190130
  Transmission Date: 20190417
  Serious: No
  Sender: FDA-Public Use
  Company Number: US-PFIZER INC-2019029980

PATIENT
  Age: 50 Year
  Sex: Female
  Weight: 102 kg

DRUGS (2)
  1. GABAPENTIN. [Suspect]
     Active Substance: GABAPENTIN
     Dosage: 900 MG, THREE TIMES A DAY (1.5 TABLET, TID)
     Route: 048
  2. GABAPENTIN. [Suspect]
     Active Substance: GABAPENTIN
     Indication: NEUROPATHY PERIPHERAL
     Dosage: 900 MG, ONCE A DAY (1.5 TABLET)
     Route: 048

REACTIONS (1)
  - Drug ineffective for unapproved indication [Unknown]
